FAERS Safety Report 7860069-9 (Version None)
Quarter: 2011Q4

REPORT INFORMATION
  Report Type: 
  Country: None (occurrence: None)
  Receive Date: 20111025
  Receipt Date: 20111018
  Transmission Date: 20120403
  Serious: Yes (Life-Threatening, Hospitalization, Other)
  Sender: FDA-Public Use
  Company Number: 2011SP049120

PATIENT
  Sex: Female
  Weight: 62.9 kg

DRUGS (3)
  1. TEMOZOLOMIDE [Suspect]
     Indication: ACUTE MYELOID LEUKAEMIA
     Dosage: 200 MG/M2; QD; PO
     Route: 048
     Dates: start: 20110801
  2. ABT-888 [Suspect]
     Indication: ACUTE MYELOID LEUKAEMIA
     Dosage: 80 MG; QD; PO 80 MG; BID; PO
     Route: 048
     Dates: start: 20110801, end: 20110801
  3. ABT-888 [Suspect]
     Indication: ACUTE MYELOID LEUKAEMIA
     Dosage: 80 MG; QD; PO 80 MG; BID; PO
     Route: 048
     Dates: start: 20110804

REACTIONS (11)
  - RASH PRURITIC [None]
  - NEUTROPENIA [None]
  - HERPES ZOSTER [None]
  - PNEUMONIA [None]
  - PYREXIA [None]
  - BACTERIAL INFECTION [None]
  - NEURALGIA [None]
  - PLATELET DISORDER [None]
  - SEPSIS [None]
  - BLOOD CULTURE POSITIVE [None]
  - BLOOD PRESSURE SYSTOLIC DECREASED [None]
